FAERS Safety Report 15344303 (Version 1)
Quarter: 2018Q3

REPORT INFORMATION
  Report Type: Spontaneous
  Country: US (occurrence: US)
  Receive Date: 20180903
  Receipt Date: 20180903
  Transmission Date: 20181010
  Serious: No
  Sender: FDA-Public Use
  Company Number: US-BIOGEN-2016BI00333228

PATIENT
  Sex: Female

DRUGS (1)
  1. AVONEX [Suspect]
     Active Substance: INTERFERON BETA-1A
     Indication: MULTIPLE SCLEROSIS
     Route: 030
     Dates: start: 19950102

REACTIONS (5)
  - Cognitive disorder [Not Recovered/Not Resolved]
  - Drug intolerance [Recovered/Resolved]
  - Bedridden [Unknown]
  - Memory impairment [Not Recovered/Not Resolved]
  - Injection site reaction [Unknown]
